FAERS Safety Report 12694932 (Version 1)
Quarter: 2016Q3

REPORT INFORMATION
  Report Type: Spontaneous
  Country: US (occurrence: US)
  Receive Date: 20160829
  Receipt Date: 20160829
  Transmission Date: 20161109
  Serious: No
  Sender: FDA-Public Use
  Company Number: US-ASTRAZENECA-2016SE48815

PATIENT
  Age: 55 Year
  Sex: Female

DRUGS (16)
  1. SEROQUEL XR [Suspect]
     Active Substance: QUETIAPINE FUMARATE
     Dosage: 450.0MG UNKNOWN
     Route: 048
     Dates: start: 20160802
  2. SEROQUEL XR [Suspect]
     Active Substance: QUETIAPINE FUMARATE
     Dosage: 50.0MG UNKNOWN
     Route: 048
  3. REXULTI [Suspect]
     Active Substance: BREXPIPRAZOLE
     Indication: AFFECTIVE DISORDER
     Dosage: 2 MG FOR 1 WEEK
     Route: 048
  4. ZIPRASIDONE. [Concomitant]
     Active Substance: ZIPRASIDONE
  5. DIOVAN [Concomitant]
     Active Substance: VALSARTAN
  6. REXULTI [Suspect]
     Active Substance: BREXPIPRAZOLE
     Indication: AFFECTIVE DISORDER
     Dosage: 0.5 MG EVERY DAY
     Route: 048
     Dates: start: 20160802
  7. REXULTI [Suspect]
     Active Substance: BREXPIPRAZOLE
     Indication: AFFECTIVE DISORDER
     Dosage: 1 MG 1 WEEK
     Route: 048
  8. OXCARBAZEPINE. [Concomitant]
     Active Substance: OXCARBAZEPINE
  9. ABILIFY [Concomitant]
     Active Substance: ARIPIPRAZOLE
     Dates: start: 2009
  10. NAPROXEN. [Concomitant]
     Active Substance: NAPROXEN
  11. SEROQUEL XR [Suspect]
     Active Substance: QUETIAPINE FUMARATE
     Route: 048
  12. DIVALPROEX SODIUM. [Concomitant]
     Active Substance: DIVALPROEX SODIUM
  13. ESTRADIOL. [Concomitant]
     Active Substance: ESTRADIOL
  14. REXULTI [Suspect]
     Active Substance: BREXPIPRAZOLE
     Indication: AFFECTIVE DISORDER
     Dosage: 0.5 MG
     Route: 048
     Dates: start: 20160329
  15. PROPRANOLOL [Concomitant]
     Active Substance: PROPRANOLOL\PROPRANOLOL HYDROCHLORIDE
  16. ESTRADIOL. [Concomitant]
     Active Substance: ESTRADIOL
     Dosage: TOPICAL

REACTIONS (6)
  - Product use issue [Unknown]
  - Weight increased [Recovering/Resolving]
  - Off label use [Unknown]
  - Blood pressure increased [Recovered/Resolved]
  - Palpitations [Recovered/Resolved]
  - Blood glucose increased [Recovering/Resolving]

NARRATIVE: CASE EVENT DATE: 2016
